FAERS Safety Report 8416543-X (Version None)
Quarter: 2012Q2

REPORT INFORMATION
  Report Type: 
  Country: None (occurrence: None)
  Receive Date: 20120606
  Receipt Date: 20120601
  Transmission Date: 20120825
  Serious: Yes (Other)
  Sender: FDA-Public Use
  Company Number: SE-GLAXOSMITHKLINE-B0784724A

PATIENT
  Sex: Female

DRUGS (9)
  1. BRICANYL [Concomitant]
  2. PROPAVAN [Concomitant]
  3. PREDNISOLONE [Concomitant]
  4. ALVEDON FORTE [Concomitant]
  5. VISCOTEARS [Concomitant]
  6. VOTRIENT [Suspect]
     Indication: RENAL CANCER METASTATIC
     Dosage: 800MG PER DAY
     Route: 048
     Dates: start: 20111201, end: 20120131
  7. FICORTRIL [Concomitant]
  8. SUNITINIB MALATE [Concomitant]
     Indication: RENAL CANCER METASTATIC
  9. SYMBICORT [Concomitant]

REACTIONS (6)
  - JAUNDICE [None]
  - TRANSAMINASES INCREASED [None]
  - GENERAL PHYSICAL HEALTH DETERIORATION [None]
  - ALANINE AMINOTRANSFERASE INCREASED [None]
  - HEPATOTOXICITY [None]
  - BLOOD BILIRUBIN INCREASED [None]
